FAERS Safety Report 15798226 (Version 1)
Quarter: 2019Q1

REPORT INFORMATION
  Report Type: Spontaneous
  Country: GB (occurrence: GB)
  Receive Date: 20190108
  Receipt Date: 20190108
  Transmission Date: 20190417
  Serious: Yes (Hospitalization, Other)
  Sender: FDA-Public Use
  Company Number: GB-PFIZER INC-2019006075

PATIENT
  Age: 83 Year
  Sex: Male
  Weight: 87 kg

DRUGS (13)
  1. TIGECYCLINE. [Suspect]
     Active Substance: TIGECYCLINE
     Indication: OSTEOMYELITIS
     Dosage: 100 MG, 1X/DAY
     Route: 042
     Dates: start: 20181109, end: 20181116
  2. CYCLIZINE HYDROCHLORIDE [Concomitant]
     Active Substance: CYCLIZINE HYDROCHLORIDE
     Dosage: UNK
  3. DIHYDROCODEINE TARTRATE [Concomitant]
     Active Substance: DIHYDROCODEINE BITARTRATE
     Dosage: UNK
  4. CEFTAZIDIME SODIUM [Concomitant]
     Active Substance: CEFTAZIDIME SODIUM
     Dosage: UNK
  5. ZOPICLONE [Concomitant]
     Active Substance: ZOPICLONE
     Dosage: UNK
  6. DOCUSATE SODIUM. [Concomitant]
     Active Substance: DOCUSATE SODIUM
     Dosage: UNK
  7. PENTOXIFYLLINE. [Concomitant]
     Active Substance: PENTOXIFYLLINE
     Dosage: UNK
  8. CASSIA SENNA [Concomitant]
     Active Substance: HERBALS\SENNOSIDES
     Dosage: UNK
  9. BACLOFEN. [Concomitant]
     Active Substance: BACLOFEN
     Dosage: UNK
  10. OXYCODONE [Concomitant]
     Active Substance: OXYCODONE
     Dosage: UNK
  11. PARACETAMOL [Concomitant]
     Active Substance: ACETAMINOPHEN
     Dosage: UNK
  12. LANSOPRAZOLE. [Concomitant]
     Active Substance: LANSOPRAZOLE
     Dosage: UNK
  13. ONDANSETRON [Concomitant]
     Active Substance: ONDANSETRON
     Dosage: UNK

REACTIONS (5)
  - Malaise [Unknown]
  - Nausea [Unknown]
  - Pancreatitis acute [Recovered/Resolved with Sequelae]
  - Vomiting [Unknown]
  - Pain [Unknown]

NARRATIVE: CASE EVENT DATE: 20181116
